FAERS Safety Report 10609633 (Version 2)
Quarter: 2014Q4

REPORT INFORMATION
  Report Type: Spontaneous
  Country: JP (occurrence: JP)
  Receive Date: 20141126
  Receipt Date: 20141126
  Transmission Date: 20150529
  Serious: Yes (Hospitalization)
  Sender: FDA-Public Use
  Company Number: JP-ROCHE-1471113

PATIENT
  Age: 63 Year
  Sex: Female
  Weight: 56 kg

DRUGS (5)
  1. SOVRIAD [Suspect]
     Active Substance: SIMEPREVIR
     Indication: PRODUCT USED FOR UNKNOWN INDICATION
     Dosage: DOSAGE IS UNCERTAIN.
     Route: 065
     Dates: start: 20140507, end: 20140729
  2. COPEGUS [Suspect]
     Active Substance: RIBAVIRIN
     Indication: CHRONIC HEPATITIS C
     Route: 048
     Dates: start: 20140610, end: 20140916
  3. COPEGUS [Suspect]
     Active Substance: RIBAVIRIN
     Indication: CHRONIC HEPATITIS C
     Route: 048
     Dates: start: 20140507, end: 20140609
  4. PEGASYS [Suspect]
     Active Substance: PEGINTERFERON ALFA-2A
     Indication: CHRONIC HEPATITIS C
     Route: 058
     Dates: start: 20140507, end: 20140909
  5. COPEGUS [Suspect]
     Active Substance: RIBAVIRIN
     Indication: CHRONIC HEPATITIS C
     Route: 048
     Dates: start: 20140922

REACTIONS (6)
  - Pyrexia [Unknown]
  - Diarrhoea [Unknown]
  - Cerebral infarction [Recovering/Resolving]
  - Hypoaesthesia [Unknown]
  - Sensory disturbance [Unknown]
  - Abdominal pain [Unknown]

NARRATIVE: CASE EVENT DATE: 20140915
